FAERS Safety Report 16368573 (Version 1)
Quarter: 2019Q2

REPORT INFORMATION
  Report Type: Report from Study
  Country: US (occurrence: US)
  Receive Date: 20190529
  Receipt Date: 20190529
  Transmission Date: 20190711
  Serious: Yes (Hospitalization, Other)
  Sender: FDA-Public Use
  Company Number: US-GILEAD-2019-0389957

PATIENT
  Age: 20 Year
  Sex: Male

DRUGS (2)
  1. SYMBICORT [Concomitant]
     Active Substance: BUDESONIDE\FORMOTEROL FUMARATE DIHYDRATE
     Indication: CYSTIC FIBROSIS
     Dosage: 160-4.5MG INH TWO PUFF BY MOUTH TWICE A DAY
     Route: 048
     Dates: start: 20151015
  2. AZTREONAM LYSINE [Suspect]
     Active Substance: AZTREONAM LYSINE
     Indication: CYSTIC FIBROSIS
     Dosage: 75 MG TID FOR 28 DAYS, THEN 28 DAYS OFF AND REPEAT CYCLE
     Route: 055
     Dates: start: 20151023

REACTIONS (3)
  - Cystic fibrosis [Not Recovered/Not Resolved]
  - Pseudomonas infection [Not Recovered/Not Resolved]
  - Cystic fibrosis [Unknown]
